FAERS Safety Report 19235997 (Version 1)
Quarter: 2021Q2

REPORT INFORMATION
  Report Type: Spontaneous
  Country: CA (occurrence: CA)
  Receive Date: 20210510
  Receipt Date: 20210510
  Transmission Date: 20210717
  Serious: Yes (Other)
  Sender: FDA-Public Use
  Company Number: CA-ORGANON-O2105CAN000399

PATIENT
  Sex: Female

DRUGS (2)
  1. STERILE WATER [Suspect]
     Active Substance: WATER
     Dosage: UNK
     Route: 065
  2. PREGNYL [Suspect]
     Active Substance: CHORIOGONADOTROPIN ALFA
     Dosage: UNK
     Route: 065

REACTIONS (2)
  - Hydrosalpinx [Not Recovered/Not Resolved]
  - Infertility female [Unknown]
